FAERS Safety Report 20262771 (Version 1)
Quarter: 2021Q4

REPORT INFORMATION
  Report Type: Spontaneous
  Country: NL (occurrence: NL)
  Receive Date: 20211231
  Receipt Date: 20211231
  Transmission Date: 20220303
  Serious: Yes (Hospitalization)
  Sender: FDA-Public Use
  Company Number: None

PATIENT
  Age: 65 Year
  Sex: Female
  Weight: 77.7 kg

DRUGS (17)
  1. OXYCODONE [Suspect]
     Active Substance: OXYCODONE
     Indication: Musculoskeletal discomfort
     Dosage: 20 MILLIGRAM DAILY;
     Dates: start: 2019, end: 20211130
  2. COSMETICS [Concomitant]
     Active Substance: COSMETICS
     Dosage: THERAPY START DATE AND END DATE : ASKU
  3. FERROFUMARAT [Concomitant]
     Dosage: 200 MG (MILLIGRAM) , THERAPY START DATE AND END DATE : ASKU
  4. ASCORBIC ACID [Concomitant]
     Active Substance: ASCORBIC ACID
     Dosage: 500 MG (MILLIGRAM) , THERAPY START DATE AND END DATE : ASKU
  5. THIAMINE [Concomitant]
     Active Substance: THIAMINE
     Dosage: 50 MG/ML (MILLIGRAM PER MILLILITER) , THERAPY START DATE AND END DATE : ASKU
  6. PANTOPRAZOLE SODIUM [Concomitant]
     Active Substance: PANTOPRAZOLE SODIUM
     Dosage: 40 MG (MILLIGRAM) , THERAPY START DATE AND END DATE : ASKU , PANTOPRAZOL TABLET MSR
  7. BUDESONIDE/FORMOTEROL / SYMBICORT TURBUHALER [Concomitant]
     Dosage: NOT KNOWN  , THERAPY START DATE AND END DATE : ASKU , STRENGTH : INHALPDR 100/6MCG/DO 120DO
  8. ATENOLOL [Concomitant]
     Active Substance: ATENOLOL
     Dosage: 50 MG (MILLIGRAM) , THERAPY START DATE AND END DATE : ASKU
  9. VITAMINE B COMPLEX FORTE [Concomitant]
     Dosage: THERAPY START DATE AND END DATE : ASKU
  10. COLECALCIFEROL / D-CURA [Concomitant]
     Dosage: 25000 UNITS  ,  THERAPY START DATE AND END DATE : ASKU
  11. ENALAPRIL [Concomitant]
     Active Substance: ENALAPRIL
     Dosage: 10 MG (MILLIGRAM) , THERAPY START DATE AND END DATE : ASKU
  12. PREGABALIN [Concomitant]
     Active Substance: PREGABALIN
     Dosage: 300 MG (MILLIGRAM) , THERAPY START DATE AND END DATE : ASKU
  13. PARACETAMOL / WITTE KRUIS PARACETAMOL [Concomitant]
     Dosage: SACHET (GRANULATE),500 MG (MILLIGRAM) , THERAPY START DATE AND END DATE : ASKU
  14. ATORVASTATIN [Concomitant]
     Active Substance: ATORVASTATIN
     Dosage: 20 MG (MILLIGRAM) , THERAPY START DATE AND END DATE : ASKU
  15. HYDROCORTISON / ACECORT [Concomitant]
     Dosage: 10 MG (MILLIGRAM) , THERAPY START DATE AND END DATE : ASKU
  16. SALBUTAMOL / VENTOLIN [Concomitant]
     Dosage: AEROSOL, 100 UG/DOSE (MICROGRAMS PER DOSE), THERAPY START DATE AND END DATE : ASKU , SALBUTAMOL AERO
  17. FUROSEMIDE [Concomitant]
     Active Substance: FUROSEMIDE
     Dosage: 40 MG (MILLIGRAM) , THERAPY START DATE AND END DATE : ASKU

REACTIONS (4)
  - Diarrhoea [Recovered/Resolved]
  - Somnolence [Recovered/Resolved]
  - Dehydration [Recovered/Resolved]
  - Renal impairment [Recovered/Resolved]

NARRATIVE: CASE EVENT DATE: 20211130
